FAERS Safety Report 15792594 (Version 1)
Quarter: 2019Q1

REPORT INFORMATION
  Report Type: Report from Study
  Country: CA (occurrence: CA)
  Receive Date: 20190107
  Receipt Date: 20190107
  Transmission Date: 20190417
  Serious: Yes (Hospitalization, Other)
  Sender: FDA-Public Use
  Company Number: CA-TEVA-2019-CA-994934

PATIENT
  Age: 46 Year
  Sex: Female

DRUGS (32)
  1. DESOXIMETASONE. [Suspect]
     Active Substance: DESOXIMETASONE
     Indication: BRONCHOSPASM
     Route: 065
  2. OMALIZUMAB. [Suspect]
     Active Substance: OMALIZUMAB
     Route: 058
  3. OMALIZUMAB. [Suspect]
     Active Substance: OMALIZUMAB
     Route: 058
  4. OMALIZUMAB. [Suspect]
     Active Substance: OMALIZUMAB
     Route: 058
  5. METFORMIN [Suspect]
     Active Substance: METFORMIN HYDROCHLORIDE
     Indication: PRODUCT USED FOR UNKNOWN INDICATION
     Route: 065
  6. INDACATEROL MALEATE [Suspect]
     Active Substance: INDACATEROL MALEATE
     Indication: ASTHMA
     Route: 055
  7. DEXILANT [Concomitant]
     Active Substance: DEXLANSOPRAZOLE
     Indication: PRODUCT USED FOR UNKNOWN INDICATION
     Route: 065
  8. SPIRIVA [Concomitant]
     Active Substance: TIOTROPIUM BROMIDE MONOHYDRATE
     Indication: PRODUCT USED FOR UNKNOWN INDICATION
     Dosage: 1 DOSAGE FORMS DAILY;
     Route: 065
  9. CANDESARTAN CILEXETIL. [Suspect]
     Active Substance: CANDESARTAN CILEXETIL
     Indication: PRODUCT USED FOR UNKNOWN INDICATION
     Route: 065
  10. OMALIZUMAB. [Suspect]
     Active Substance: OMALIZUMAB
     Route: 058
  11. DESOXIMETASONE. [Suspect]
     Active Substance: DESOXIMETASONE
     Indication: INFLUENZA
     Route: 048
  12. OMALIZUMAB. [Suspect]
     Active Substance: OMALIZUMAB
     Route: 058
  13. OMALIZUMAB. [Suspect]
     Active Substance: OMALIZUMAB
     Route: 058
  14. OMALIZUMAB. [Suspect]
     Active Substance: OMALIZUMAB
     Route: 058
  15. OMALIZUMAB. [Suspect]
     Active Substance: OMALIZUMAB
     Route: 058
  16. OMALIZUMAB. [Suspect]
     Active Substance: OMALIZUMAB
     Indication: ASTHMA
     Route: 058
  17. OMALIZUMAB. [Suspect]
     Active Substance: OMALIZUMAB
     Route: 058
  18. OMALIZUMAB. [Suspect]
     Active Substance: OMALIZUMAB
     Route: 058
  19. OMALIZUMAB. [Suspect]
     Active Substance: OMALIZUMAB
     Route: 058
  20. VENTOLIN [Concomitant]
     Active Substance: ALBUTEROL SULFATE
     Indication: BRONCHOSPASM
     Route: 065
  21. OMALIZUMAB. [Suspect]
     Active Substance: OMALIZUMAB
     Route: 058
  22. OMALIZUMAB. [Suspect]
     Active Substance: OMALIZUMAB
     Route: 058
  23. ALVESCO [Concomitant]
     Active Substance: CICLESONIDE
     Indication: PRODUCT USED FOR UNKNOWN INDICATION
     Dosage: 2 DOSAGE FORMS DAILY;
     Route: 065
  24. SYMBICORT [Concomitant]
     Active Substance: BUDESONIDE\FORMOTEROL FUMARATE DIHYDRATE
     Indication: BRONCHOSPASM
     Dosage: 4 DOSAGE FORMS DAILY;
     Route: 055
  25. OMALIZUMAB. [Suspect]
     Active Substance: OMALIZUMAB
     Route: 058
  26. OMALIZUMAB. [Suspect]
     Active Substance: OMALIZUMAB
     Route: 058
  27. OMALIZUMAB. [Suspect]
     Active Substance: OMALIZUMAB
     Route: 058
  28. OMALIZUMAB. [Suspect]
     Active Substance: OMALIZUMAB
     Route: 058
  29. OMALIZUMAB. [Suspect]
     Active Substance: OMALIZUMAB
     Route: 058
  30. DICYCLOMINE HYDROCHLORIDE. [Concomitant]
     Active Substance: DICYCLOMINE HYDROCHLORIDE
     Indication: PRODUCT USED FOR UNKNOWN INDICATION
     Route: 065
  31. PREDNISONE. [Concomitant]
     Active Substance: PREDNISONE
     Indication: PRODUCT USED FOR UNKNOWN INDICATION
     Route: 065
  32. SINGULAIR [Concomitant]
     Active Substance: MONTELUKAST SODIUM
     Indication: PRODUCT USED FOR UNKNOWN INDICATION
     Dosage: 10 MILLIGRAM DAILY;
     Route: 065

REACTIONS (31)
  - Nervousness [Recovered/Resolved]
  - Carpal tunnel syndrome [Recovered/Resolved]
  - Cough [Recovered/Resolved]
  - Emotional distress [Recovered/Resolved]
  - Product use in unapproved indication [Recovered/Resolved]
  - Crepitations [Recovered/Resolved]
  - Drug hypersensitivity [Recovered/Resolved]
  - Fungal pharyngitis [Recovered/Resolved]
  - Malaise [Recovered/Resolved]
  - Sputum discoloured [Recovered/Resolved]
  - Gastroenteritis [Recovered/Resolved]
  - Bursitis [Recovered/Resolved]
  - Nausea [Recovered/Resolved]
  - Weight decreased [Recovered/Resolved]
  - Bronchitis [Recovered/Resolved]
  - Bronchospasm [Recovered/Resolved]
  - Chest discomfort [Recovered/Resolved]
  - Influenza [Recovered/Resolved]
  - Productive cough [Recovered/Resolved]
  - Seasonal allergy [Recovered/Resolved]
  - Tooth infection [Recovered/Resolved]
  - Wheezing [Recovered/Resolved]
  - Adrenal insufficiency [Recovered/Resolved]
  - Dyspnoea exertional [Recovered/Resolved]
  - Fear of injection [Recovered/Resolved]
  - Increased upper airway secretion [Recovered/Resolved]
  - Tonsillitis fungal [Recovered/Resolved]
  - Abdominal pain [Recovered/Resolved]
  - Blood pressure systolic increased [Recovered/Resolved]
  - Renal failure [Recovered/Resolved]
  - Secretion discharge [Recovered/Resolved]
